FAERS Safety Report 5452392-2 (Version None)
Quarter: 2007Q3

REPORT INFORMATION
  Report Type: 
  Country: None (occurrence: None)
  Receive Date: 20070914
  Receipt Date: 20070911
  Transmission Date: 20080115
  Serious: Yes (Hospitalization)
  Sender: FDA-Public Use
  Company Number: FR-BRISTOL-MYERS SQUIBB COMPANY-13822531

PATIENT
  Age: 70 Year
  Sex: Female

DRUGS (14)
  1. ENDOXAN [Suspect]
     Indication: VASCULITIS
     Route: 042
     Dates: start: 20070601, end: 20070601
  2. UROMITEXAN [Suspect]
     Indication: VASCULITIS
     Dates: start: 20070601, end: 20070601
  3. OSTRAM D3 [Suspect]
     Indication: VASCULITIS
     Route: 048
     Dates: start: 20070601, end: 20070601
  4. ESOMEPRAZOLE MAGNESIUM [Concomitant]
     Route: 048
  5. LEXOMIL [Concomitant]
  6. RIFINAH [Concomitant]
     Indication: ANTIBIOTIC PROPHYLAXIS
     Dates: start: 20070601
  7. SOLU-MEDROL [Concomitant]
     Dates: start: 20070522
  8. ATHYMIL [Concomitant]
     Dates: start: 20070522
  9. PRAVASTATIN SODIUM [Concomitant]
     Dates: start: 20070601
  10. ASPEGIC 325 [Concomitant]
     Dates: start: 20070601
  11. SPECIAFOLDINE [Concomitant]
     Indication: PROPHYLAXIS
  12. BACTRIM [Concomitant]
     Indication: PROPHYLAXIS
     Route: 048
     Dates: start: 20070519
  13. CARDENSIEL [Concomitant]
     Dates: end: 20070529
  14. OFLOCET [Concomitant]
     Dates: end: 20070529

REACTIONS (1)
  - PANCREATITIS ACUTE [None]
